FAERS Safety Report 26092630 (Version 1)
Quarter: 2025Q4

REPORT INFORMATION
  Report Type: Spontaneous
  Country: JP (occurrence: JP)
  Receive Date: 20251126
  Receipt Date: 20251126
  Transmission Date: 20260118
  Serious: Yes (Hospitalization)
  Sender: PFIZER
  Company Number: JP-PFIZER INC-202500228499

PATIENT

DRUGS (1)
  1. ELREXFIO [Suspect]
     Active Substance: ELRANATAMAB-BCMM
     Dosage: 76 MG, SINGLE
     Dates: start: 20251111, end: 20251111

REACTIONS (2)
  - Neutropenia [Recovering/Resolving]
  - Blast cells present [Recovering/Resolving]

NARRATIVE: CASE EVENT DATE: 20251117
